FAERS Safety Report 9134933 (Version 1)
Quarter: 2013Q1

REPORT INFORMATION
  Report Type: Spontaneous
  Country: US (occurrence: US)
  Receive Date: 20130304
  Receipt Date: 20130304
  Transmission Date: 20140127
  Serious: No
  Sender: FDA-Public Use
  Company Number: US-ENDO PHARMACEUTICALS INC.-ENDC20110103

PATIENT
  Age: 68 Year
  Sex: Female

DRUGS (3)
  1. ENDOCET [Suspect]
     Indication: ARTHRALGIA
     Dosage: 20/650 MG
     Route: 048
     Dates: start: 201102
  2. ENDOCET [Suspect]
     Indication: ARTHRALGIA
     Dosage: UNKNOWN
     Route: 048
  3. BABY ASPIRIN [Concomitant]

REACTIONS (1)
  - Contusion [Not Recovered/Not Resolved]
